FAERS Safety Report 8109776-3 (Version None)
Quarter: 2012Q1

REPORT INFORMATION
  Report Type: 
  Country: None (occurrence: None)
  Receive Date: 20120202
  Receipt Date: 20120124
  Transmission Date: 20120608
  Serious: Yes (Other)
  Sender: FDA-Public Use
  Company Number: US-ELI_LILLY_AND_COMPANY-US201201008159

PATIENT
  Sex: Female

DRUGS (3)
  1. HUMALOG [Suspect]
     Dosage: 6 U, TID
     Route: 065
     Dates: start: 20090101
  2. LANTUS [Concomitant]
     Dosage: UNK, EACH EVENING
  3. HUMALOG [Suspect]
     Indication: TYPE 2 DIABETES MELLITUS
     Dosage: 6 U, TID
     Route: 065
     Dates: start: 20090101

REACTIONS (4)
  - CATARACT [None]
  - THROMBOSIS [None]
  - DIALYSIS [None]
  - MEMORY IMPAIRMENT [None]
